FAERS Safety Report 6686758-X (Version None)
Quarter: 2010Q2

REPORT INFORMATION
  Report Type: 
  Country: None (occurrence: None)
  Receive Date: 20100419
  Receipt Date: 20100409
  Transmission Date: 20101027
  Serious: Yes (Hospitalization)
  Sender: FDA-Public Use
  Company Number: IE-MERCK-1004USA01658

PATIENT
  Age: 17 Month
  Sex: Male

DRUGS (5)
  1. DECADRON [Suspect]
     Indication: B-CELL TYPE ACUTE LEUKAEMIA
     Route: 048
  2. DAUNORUBICIN [Suspect]
     Indication: B-CELL TYPE ACUTE LEUKAEMIA
     Route: 065
  3. PEGYLATED DOCETAXEL [Suspect]
     Indication: B-CELL TYPE ACUTE LEUKAEMIA
     Route: 065
  4. VINCRISTINE SULFATE [Suspect]
     Indication: B-CELL TYPE ACUTE LEUKAEMIA
     Route: 065
  5. METHOTREXATE [Suspect]
     Indication: B-CELL TYPE ACUTE LEUKAEMIA
     Route: 065

REACTIONS (1)
  - OESOPHAGEAL STENOSIS [None]
